FAERS Safety Report 5896223-5 (Version None)
Quarter: 2008Q3

REPORT INFORMATION
  Report Type: 
  Country: None (occurrence: None)
  Receive Date: 20080924
  Receipt Date: 20080912
  Transmission Date: 20090109
  Serious: Yes (Hospitalization)
  Sender: FDA-Public Use
  Company Number: US-PFIZER INC-2005086969

PATIENT
  Sex: Male
  Weight: 68.6 kg

DRUGS (11)
  1. SU-011,248 [Suspect]
     Indication: RENAL CANCER
     Route: 048
     Dates: start: 20050525, end: 20050625
  2. XELODA [Suspect]
     Indication: RENAL CANCER
     Route: 048
     Dates: start: 20050524
  3. PROTONIX [Concomitant]
     Indication: DYSPEPSIA
     Route: 048
     Dates: start: 20050201
  4. ZOLOFT [Concomitant]
     Indication: DEPRESSION
     Route: 048
     Dates: start: 20010101
  5. COLACE [Concomitant]
     Indication: CONSTIPATION
     Route: 048
     Dates: start: 20050201
  6. VITAMIN B6 [Concomitant]
     Dates: start: 20050524, end: 20050621
  7. MYLANTA [Concomitant]
     Indication: DYSPEPSIA
     Dates: start: 20050608
  8. MYLANTA [Concomitant]
     Dates: start: 20050201, end: 20050608
  9. MAGIC MOUTHWASH [Concomitant]
     Indication: OESOPHAGITIS
     Dates: start: 20050608, end: 20050622
  10. CORTEF [Concomitant]
     Indication: HYPERTENSION
     Route: 048
     Dates: start: 20050401
  11. FLUDROCORTISONE ACETATE [Concomitant]
     Route: 061
     Dates: start: 20050401

REACTIONS (2)
  - CHEST PAIN [None]
  - INFECTION [None]
